FAERS Safety Report 8483939-X (Version None)
Quarter: 2012Q3

REPORT INFORMATION
  Report Type: 
  Country: None (occurrence: None)
  Receive Date: 20120703
  Receipt Date: 20120627
  Transmission Date: 20120928
  Serious: No
  Sender: FDA-Public Use
  Company Number: US-PFIZER INC-2012155964

PATIENT
  Sex: Female
  Weight: 71.655 kg

DRUGS (1)
  1. INLYTA [Suspect]
     Indication: RENAL CANCER
     Dosage: 5 MG, 2X/DAY
     Route: 048
     Dates: start: 20120621, end: 20120627

REACTIONS (5)
  - SOMNOLENCE [None]
  - HEADACHE [None]
  - PALPITATIONS [None]
  - ARTHRALGIA [None]
  - PAIN IN EXTREMITY [None]
